FAERS Safety Report 24665312 (Version 1)
Quarter: 2024Q4

REPORT INFORMATION
  Report Type: Spontaneous
  Country: FR (occurrence: FR)
  Receive Date: 20241126
  Receipt Date: 20241126
  Transmission Date: 20250115
  Serious: Yes (Other)
  Sender: MYLAN
  Company Number: FR-JNJFOC-20241119087

PATIENT
  Age: 77 Year
  Sex: Female
  Weight: 58 kg

DRUGS (6)
  1. DEXAMETHASONE [Suspect]
     Active Substance: DEXAMETHASONE
     Indication: Plasma cell myeloma
     Dosage: 2ND LINE
     Route: 065
     Dates: start: 202303
  2. DEXAMETHASONE [Suspect]
     Active Substance: DEXAMETHASONE
     Dosage: 2ND LINE
     Route: 065
     Dates: start: 202311
  3. DARZALEX [Suspect]
     Active Substance: DARATUMUMAB
     Indication: Plasma cell myeloma
     Dosage: UNK (2ND LINE)
     Route: 065
     Dates: start: 202303
  4. DARZALEX [Suspect]
     Active Substance: DARATUMUMAB
     Dosage: UNK
     Route: 065
     Dates: start: 202311
  5. VELCADE [Suspect]
     Active Substance: BORTEZOMIB
     Indication: Plasma cell myeloma
     Dosage: UNK (2ND LINE)
     Route: 065
     Dates: start: 202303
  6. VELCADE [Suspect]
     Active Substance: BORTEZOMIB
     Dosage: UNK (2ND LINE)
     Route: 065
     Dates: start: 202311

REACTIONS (3)
  - Plasma cell myeloma [Unknown]
  - Gastrointestinal disorder [Unknown]
  - Intentional product use issue [Unknown]
